FAERS Safety Report 23313117 (Version 2)
Quarter: 2024Q3

REPORT INFORMATION
  Report Type: Spontaneous
  Country: US (occurrence: US)
  Receive Date: 20231219
  Receipt Date: 20240701
  Transmission Date: 20241016
  Serious: No
  Sender: PFIZER
  Company Number: US-PFIZER INC-202300445217

PATIENT
  Age: 24 Year
  Sex: Male
  Weight: 67.59 kg

DRUGS (1)
  1. OXBRYTA [Suspect]
     Active Substance: VOXELOTOR
     Dosage: 500 MG., 3 TABLETS, ONCE DAILY, ORALLY.
     Route: 048
     Dates: start: 20210723

REACTIONS (1)
  - Pain [Unknown]
